FAERS Safety Report 7252316-1 (Version None)
Quarter: 2011Q1

REPORT INFORMATION
  Report Type: 
  Country: None (occurrence: None)
  Receive Date: 20110129
  Receipt Date: 20100401
  Transmission Date: 20110831
  Serious: No
  Sender: FDA-Public Use
  Company Number: PR-ABBOTT-10P-131-0624288-00

PATIENT
  Sex: Female

DRUGS (4)
  1. HUMIRA [Suspect]
     Indication: PSORIASIS
     Route: 058
     Dates: start: 20080101
  2. EFFEXOR [Concomitant]
     Indication: PAIN
     Dosage: 150MG; 1 TABLET DAILY
     Route: 048
  3. SKELAXIN [Concomitant]
     Indication: PAIN
     Route: 048
  4. FOLIC ACID [Concomitant]
     Indication: PRODUCT USED FOR UNKNOWN INDICATION
     Dosage: 1 QD
     Route: 048

REACTIONS (3)
  - INJECTION SITE INFLAMMATION [None]
  - INJECTION SITE PRURITUS [None]
  - INJECTION SITE WARMTH [None]
